FAERS Safety Report 23138716 (Version 1)
Quarter: 2023Q4

REPORT INFORMATION
  Report Type: Spontaneous
  Country: RU (occurrence: RU)
  Receive Date: 20231102
  Receipt Date: 20231102
  Transmission Date: 20240110
  Serious: Yes (Life-Threatening, Other)
  Sender: FDA-Public Use
  Company Number: None

PATIENT
  Age: 46 Year
  Sex: Male
  Weight: 75 kg

DRUGS (2)
  1. GADOBUTROL [Suspect]
     Active Substance: GADOBUTROL
     Indication: Magnetic resonance imaging
     Dosage: 15 ML, ONCE
     Route: 042
     Dates: start: 20231019, end: 20231019
  2. GADOBUTROL [Suspect]
     Active Substance: GADOBUTROL
     Indication: Cerebral cavernous malformation

REACTIONS (5)
  - Angioedema [Recovered/Resolved with Sequelae]
  - Foreign body in throat [Recovered/Resolved]
  - Headache [Recovered/Resolved]
  - Nausea [Recovered/Resolved]
  - Vomiting [Recovered/Resolved]

NARRATIVE: CASE EVENT DATE: 20231019
